FAERS Safety Report 19068251 (Version 1)
Quarter: 2021Q1

REPORT INFORMATION
  Report Type: Spontaneous
  Country: US (occurrence: US)
  Receive Date: 20210329
  Receipt Date: 20210329
  Transmission Date: 20210420
  Serious: No
  Sender: FDA-Public Use
  Company Number: US-PFIZER INC-2021200609

PATIENT
  Age: 65 Year
  Sex: Female
  Weight: 77.1 kg

DRUGS (8)
  1. SYNTHROID [Concomitant]
     Active Substance: LEVOTHYROXINE SODIUM
     Indication: DEPRESSION
     Dosage: 90 UG, DAILY(ONE TABLET BY MOUTH ONCE DAILY)
     Route: 048
  2. CIPROFLOXACIN. [Suspect]
     Active Substance: CIPROFLOXACIN
     Indication: NERVE INJURY
     Dosage: UNK
  3. SYNTHROID [Concomitant]
     Active Substance: LEVOTHYROXINE SODIUM
     Indication: HYPOTHYROIDISM
     Dosage: 125 UG, DAILY(ONE TABLET BY MOUTH DAILY)
     Route: 048
     Dates: start: 2007, end: 2010
  4. NP THYROID [Concomitant]
     Active Substance: LEVOTHYROXINE\LIOTHYRONINE
     Dosage: 120 MG(BY MOUTH FOUR DAYS A WEEK)
     Route: 048
     Dates: start: 2019
  5. FLAGYL [Suspect]
     Active Substance: METRONIDAZOLE\METRONIDAZOLE HYDROCHLORIDE
     Indication: NERVE INJURY
     Dosage: UNK
  6. PRALUENT [Concomitant]
     Active Substance: ALIROCUMAB
     Indication: BLOOD CHOLESTEROL INCREASED
     Dosage: UNK(TWICE MONTHLY)
  7. NP THYROID [Concomitant]
     Active Substance: LEVOTHYROXINE\LIOTHYRONINE
     Indication: HYPOTHYROIDISM
     Dosage: 90 MG (MOUTH THREE DAYS A WEEK)
     Route: 048
     Dates: start: 2019
  8. LEVAQUIN [Suspect]
     Active Substance: LEVOFLOXACIN
     Indication: NERVE INJURY
     Dosage: UNK

REACTIONS (1)
  - Drug hypersensitivity [Unknown]
